FAERS Safety Report 23385819 (Version 3)
Quarter: 2024Q2

REPORT INFORMATION
  Report Type: Spontaneous
  Country: CA (occurrence: CA)
  Receive Date: 20240110
  Receipt Date: 20240504
  Transmission Date: 20240715
  Serious: Yes (Other)
  Sender: FDA-Public Use
  Company Number: CA-CELLTRION INC.-2024CA000425

PATIENT

DRUGS (7)
  1. INFLECTRA [Suspect]
     Active Substance: INFLIXIMAB-DYYB
     Indication: Crohn^s disease
     Dosage: 300 MG, EVERY 8 WEEKS (INDUCTION WEEK 0, 2, 6 THEN MAINTENANCE EVERY 8 WEEKS)
     Route: 042
     Dates: start: 20221220
  2. INFLECTRA [Suspect]
     Active Substance: INFLIXIMAB-DYYB
     Dosage: 300 MG, EVERY 8 WEEKS (INDUCTION WEEK 0, 2, 6 THEN MAINTENANCE EVERY 8 WEEKS)
     Route: 042
     Dates: start: 20231107
  3. INFLECTRA [Suspect]
     Active Substance: INFLIXIMAB-DYYB
     Dosage: 300 MG, EVERY 8 WEEKS
     Route: 042
     Dates: start: 20240102
  4. INFLECTRA [Suspect]
     Active Substance: INFLIXIMAB-DYYB
     Dosage: 300 MG, EVERY 8 WEEKS
     Route: 042
     Dates: start: 20240221
  5. INFLECTRA [Suspect]
     Active Substance: INFLIXIMAB-DYYB
     Dosage: 300 MG, AFTER 7 WEEKS AND 6 DAYS (PRESCRIBED EVERY 8 WEEKS)
     Route: 042
     Dates: start: 20240416, end: 20240416
  6. BUPROPION [Concomitant]
     Active Substance: BUPROPION
     Dosage: 150 MG
     Route: 048
  7. PURINETHOL [Concomitant]
     Active Substance: MERCAPTOPURINE
     Dosage: 100 MG
     Route: 048

REACTIONS (4)
  - Haematochezia [Not Recovered/Not Resolved]
  - Condition aggravated [Not Recovered/Not Resolved]
  - Influenza [Not Recovered/Not Resolved]
  - Fatigue [Not Recovered/Not Resolved]

NARRATIVE: CASE EVENT DATE: 20231201
